FAERS Safety Report 7832904-1 (Version None)
Quarter: 2011Q4

REPORT INFORMATION
  Report Type: 
  Country: None (occurrence: None)
  Receive Date: 20111019
  Receipt Date: 20111010
  Transmission Date: 20120403
  Serious: Yes (Other)
  Sender: FDA-Public Use
  Company Number: ACO_27167_2011

PATIENT
  Age: 29 Year
  Sex: Female

DRUGS (14)
  1. NORCO [Concomitant]
  2. CELEXA [Concomitant]
  3. OXCARBAZEPINE [Concomitant]
  4. VIMPAT [Concomitant]
  5. AMPYRA [Suspect]
     Indication: GAIT DISTURBANCE
     Dosage: 10 MG, BID
     Dates: start: 20110201
  6. FLEXERIL [Concomitant]
  7. OMEPRAZOLE [Concomitant]
  8. MS CONTIN [Concomitant]
  9. NEURONTIN [Concomitant]
  10. PHENTERMINE [Concomitant]
  11. CETRIZINE (CETIRIZINE HYDROCHLORIDE) [Concomitant]
  12. KLONOPIN [Concomitant]
  13. PROPRANOLOL [Concomitant]
  14. GILENYA [Concomitant]

REACTIONS (6)
  - LOSS OF CONSCIOUSNESS [None]
  - TREMOR [None]
  - DIZZINESS [None]
  - PALLOR [None]
  - THYROID DISORDER [None]
  - TINNITUS [None]
